FAERS Safety Report 7956629-7 (Version None)
Quarter: 2011Q4

REPORT INFORMATION
  Report Type: 
  Country: None (occurrence: None)
  Receive Date: 20111205
  Receipt Date: 20111123
  Transmission Date: 20120403
  Serious: Yes (Death, Life-Threatening, Hospitalization)
  Sender: FDA-Public Use
  Company Number: NL-PFIZER INC-2008013916

PATIENT
  Age: 46 Year
  Sex: Female
  Weight: 71 kg

DRUGS (6)
  1. ERLOTINIB HYDROCHLORIDE [Suspect]
     Indication: NON-SMALL CELL LUNG CANCER
     Dosage: 150 MG, 1X/DAY
     Route: 048
     Dates: start: 20071016, end: 20080211
  2. METOCLOPRAMIDE [Concomitant]
     Dates: start: 20080204
  3. PANTOPRAZOLE SODIUM [Concomitant]
     Dates: start: 20080204
  4. MINOCYCLINE HCL [Concomitant]
     Dates: start: 20071220
  5. SUNITINIB MALATE [Suspect]
     Indication: NON-SMALL CELL LUNG CANCER
     Dosage: 37.5 MG, 1X/DAY
     Route: 048
     Dates: start: 20071016, end: 20080211
  6. LOPERAMIDE HCL [Concomitant]
     Dates: start: 20080204

REACTIONS (4)
  - DIARRHOEA [None]
  - HYPOCALCAEMIA [None]
  - PANCREATITIS [None]
  - DEHYDRATION [None]
